FAERS Safety Report 21280962 (Version 1)
Quarter: 2022Q3

REPORT INFORMATION
  Report Type: Spontaneous
  Country: US (occurrence: None)
  Receive Date: 20220831
  Receipt Date: 20220831
  Transmission Date: 20221027
  Serious: No
  Sender: FDA-Public Use
  Company Number: None

PATIENT
  Age: 80 Year
  Sex: Female

DRUGS (8)
  1. CAPECITABINE [Suspect]
     Active Substance: CAPECITABINE
     Indication: Rectosigmoid cancer
     Dosage: FREQUENCY : TWICE A DAY;?
     Route: 048
  2. IBUPROFEN [Concomitant]
  3. METFORMIN [Concomitant]
  4. MONTALUKAST SODIUM [Concomitant]
  5. PRINZIDE [Concomitant]
  6. PROAIR [Concomitant]
  7. HFA [Concomitant]
  8. SYMBICORT XELODA [Concomitant]

REACTIONS (1)
  - Disease progression [None]
